FAERS Safety Report 22158160 (Version 1)
Quarter: 2023Q1

REPORT INFORMATION
  Report Type: Report from Study
  Country: US (occurrence: US)
  Receive Date: 20230330
  Receipt Date: 20230330
  Transmission Date: 20230418
  Serious: Yes (Other)
  Sender: FDA-Public Use
  Company Number: US-BIOGEN-2022BI01102184

PATIENT
  Age: 16 Year
  Sex: Female

DRUGS (1)
  1. TYSABRI [Suspect]
     Active Substance: NATALIZUMAB
     Indication: Multiple sclerosis
     Dosage: INFUSED OVER 1 HOUR
     Route: 050
     Dates: start: 20220311

REACTIONS (3)
  - Papilloedema [Not Recovered/Not Resolved]
  - Off label use [Not Recovered/Not Resolved]
  - Hypotension [Recovered/Resolved]

NARRATIVE: CASE EVENT DATE: 20220301
